FAERS Safety Report 15575895 (Version 1)
Quarter: 2018Q4

REPORT INFORMATION
  Report Type: Spontaneous
  Country: US (occurrence: US)
  Receive Date: 20181029
  Receipt Date: 20181029
  Transmission Date: 20190205
  Serious: Yes (Other)
  Sender: FDA-Public Use
  Company Number: None

PATIENT
  Age: 64 Year
  Sex: Female
  Weight: 63.5 kg

DRUGS (16)
  1. ATIVAN [Suspect]
     Active Substance: LORAZEPAM
     Indication: PANIC ATTACK
     Dosage: ?          QUANTITY:1 MG MILLIGRAM(S);?
     Route: 048
     Dates: start: 20180307, end: 20180307
  2. KLONOPIN [Concomitant]
     Active Substance: CLONAZEPAM
  3. TEA TREE OIL. [Concomitant]
     Active Substance: TEA TREE OIL
  4. METROGEL [Concomitant]
     Active Substance: METRONIDAZOLE
  5. LIDOCAINE. [Concomitant]
     Active Substance: LIDOCAINE
  6. FENTANYL. [Concomitant]
     Active Substance: FENTANYL
  7. LEXAPRO [Concomitant]
     Active Substance: ESCITALOPRAM OXALATE
  8. OIL OF OLAY PRODUCTS [Concomitant]
  9. ZOFRAN [Concomitant]
     Active Substance: ONDANSETRON HYDROCHLORIDE
  10. CILOXIN EYE DROPS [Concomitant]
  11. NOVOCAINE [Concomitant]
     Active Substance: PROCAINE
  12. ATIVAN [Suspect]
     Active Substance: LORAZEPAM
     Indication: ANXIETY DISORDER
     Dosage: ?          QUANTITY:1 MG MILLIGRAM(S);?
     Route: 048
     Dates: start: 20180307, end: 20180307
  13. LIQUID LORZEPAM [Concomitant]
  14. TYLENOL [Concomitant]
     Active Substance: ACETAMINOPHEN
  15. ANACIN NOS [Concomitant]
     Active Substance: ACETAMINOPHEN OR ACETAMINOPHEN\ASPIRIN\CAFFEINE OR ASPIRIN\CAFFEINE
  16. TUMS [Concomitant]
     Active Substance: CALCIUM CARBONATE

REACTIONS (3)
  - Throat irritation [None]
  - Product substitution issue [None]
  - Tongue discomfort [None]

NARRATIVE: CASE EVENT DATE: 20180307
